FAERS Safety Report 9901388 (Version 2)
Quarter: 2014Q1

REPORT INFORMATION
  Report Type: Spontaneous
  Country: US (occurrence: US)
  Receive Date: 20140217
  Receipt Date: 20140326
  Transmission Date: 20141002
  Serious: Yes (Other)
  Sender: FDA-Public Use
  Company Number: US-PFIZER INC-2014042659

PATIENT
  Age: 53 Year
  Sex: Female

DRUGS (1)
  1. SKELAXIN [Suspect]
     Dosage: UNK

REACTIONS (2)
  - Parkinsonism [Unknown]
  - Drug hypersensitivity [Unknown]
